FAERS Safety Report 8583980-2 (Version None)
Quarter: 2012Q3

REPORT INFORMATION
  Report Type: 
  Country: None (occurrence: None)
  Receive Date: 20120810
  Receipt Date: 20120803
  Transmission Date: 20120928
  Serious: Yes (Disabling)
  Sender: FDA-Public Use
  Company Number: GB-009507513-1208GBR002389

PATIENT

DRUGS (1)
  1. ZOCOR [Suspect]
     Indication: HYPERCHOLESTEROLAEMIA
     Dosage: 40 MG, UNK
     Route: 048
     Dates: start: 20090601, end: 20110401

REACTIONS (3)
  - DYSPNOEA [None]
  - PULMONARY SARCOIDOSIS [None]
  - MALAISE [None]
